FAERS Safety Report 10307019 (Version 2)
Quarter: 2014Q3

REPORT INFORMATION
  Report Type: Spontaneous
  Country: JP (occurrence: JP)
  Receive Date: 20140715
  Receipt Date: 20140718
  Transmission Date: 20150326
  Serious: Yes (Hospitalization)
  Sender: FDA-Public Use
  Company Number: PHHY2014JP083921

PATIENT
  Age: 35 Year
  Sex: Male

DRUGS (2)
  1. GLIVEC [Suspect]
     Active Substance: IMATINIB MESYLATE
     Dosage: 400 MG, DAILY
     Route: 048
  2. GLIVEC [Suspect]
     Active Substance: IMATINIB MESYLATE
     Indication: GASTROINTESTINAL STROMAL TUMOUR
     Dosage: 400 MG, DAILY
     Route: 048

REACTIONS (4)
  - Tumour haemorrhage [Recovered/Resolved]
  - Tumour rupture [Recovered/Resolved]
  - Anaemia [Unknown]
  - Haematoma [Unknown]

NARRATIVE: CASE EVENT DATE: 201306
